FAERS Safety Report 7285502-5 (Version None)
Quarter: 2011Q1

REPORT INFORMATION
  Report Type: 
  Country: None (occurrence: None)
  Receive Date: 20110210
  Receipt Date: 20110204
  Transmission Date: 20110831
  Serious: Yes (Hospitalization)
  Sender: FDA-Public Use
  Company Number: FR-PFIZER INC-2011025496

PATIENT
  Age: 13 Year
  Sex: Female
  Weight: 34 kg

DRUGS (4)
  1. SALAZOPYRINE [Suspect]
     Dosage: 500 MG, 4X/DAY
     Route: 048
     Dates: start: 20110114, end: 20110117
  2. IMUREL [Concomitant]
     Indication: PROCTOCOLITIS
     Dosage: UNK
     Dates: start: 20080801
  3. CORTANCYL [Concomitant]
     Indication: PROCTOCOLITIS
     Dosage: UNK
     Route: 048
  4. COLOFOAM [Concomitant]
     Dosage: UNK
     Route: 054
     Dates: start: 20110114

REACTIONS (3)
  - PROCTOCOLITIS [None]
  - ABDOMINAL PAIN [None]
  - CONDITION AGGRAVATED [None]
